FAERS Safety Report 20566432 (Version 16)
Quarter: 2025Q1

REPORT INFORMATION
  Report Type: Report from Study
  Country: US (occurrence: US)
  Receive Date: 20220308
  Receipt Date: 20250211
  Transmission Date: 20250409
  Serious: Yes (Hospitalization, Other)
  Sender: TAKEDA
  Company Number: US-TAKEDA-2021TUS021863

PATIENT
  Age: 71 Year
  Sex: Female
  Weight: 111 kg

DRUGS (36)
  1. .ALPHA.1-PROTEINASE INHIBITOR HUMAN [Suspect]
     Active Substance: .ALPHA.1-PROTEINASE INHIBITOR HUMAN
     Indication: Alpha-1 antitrypsin deficiency
     Dosage: 6690 MILLIGRAM, 1/WEEK
     Dates: start: 20210219
  2. .ALPHA.1-PROTEINASE INHIBITOR HUMAN [Suspect]
     Active Substance: .ALPHA.1-PROTEINASE INHIBITOR HUMAN
     Dosage: 75 MILLIGRAM/KILOGRAM, 1/WEEK
  3. .ALPHA.1-PROTEINASE INHIBITOR HUMAN [Suspect]
     Active Substance: .ALPHA.1-PROTEINASE INHIBITOR HUMAN
  4. .ALPHA.1-PROTEINASE INHIBITOR HUMAN [Suspect]
     Active Substance: .ALPHA.1-PROTEINASE INHIBITOR HUMAN
     Dosage: 75 MILLIGRAM/KILOGRAM, 1/WEEK
  5. Bromfenac;Moxifloxacin;Prednisolone [Concomitant]
  6. DIPHENHYDRAMINE [Concomitant]
     Active Substance: DIPHENHYDRAMINE
  7. SODIUM CHLORIDE [Concomitant]
     Active Substance: SODIUM CHLORIDE
  8. EPINEPHRINE [Concomitant]
     Active Substance: EPINEPHRINE
  9. Lmx [Concomitant]
  10. IRON [Concomitant]
     Active Substance: IRON
  11. LISINOPRIL [Concomitant]
     Active Substance: LISINOPRIL
  12. CITALOPRAM [Concomitant]
     Active Substance: CITALOPRAM
  13. HYDROCHLOROTHIAZIDE [Concomitant]
     Active Substance: HYDROCHLOROTHIAZIDE
  14. VITAMIN D2 [Concomitant]
     Active Substance: ERGOCALCIFEROL
  15. VOLTAREN [Concomitant]
     Active Substance: DICLOFENAC SODIUM
  16. BREO ELLIPTA [Concomitant]
     Active Substance: FLUTICASONE FUROATE\VILANTEROL TRIFENATATE
  17. NORCO [Concomitant]
     Active Substance: ACETAMINOPHEN\HYDROCODONE BITARTRATE
  18. XOPENEX [Concomitant]
     Active Substance: LEVALBUTEROL HYDROCHLORIDE
  19. OXYGEN [Concomitant]
     Active Substance: OXYGEN
  20. BENADRYL [Concomitant]
     Active Substance: DIPHENHYDRAMINE HYDROCHLORIDE
  21. PRILOSEC [Concomitant]
     Active Substance: OMEPRAZOLE MAGNESIUM
  22. CYCLOBENZAPRINE [Concomitant]
     Active Substance: CYCLOBENZAPRINE
  23. ZOLOFT [Concomitant]
     Active Substance: SERTRALINE HYDROCHLORIDE
  24. ASPIRIN [Concomitant]
     Active Substance: ASPIRIN
  25. AZITHROMYCIN [Concomitant]
     Active Substance: AZITHROMYCIN
  26. MACROBID [Concomitant]
     Active Substance: NITROFURANTOIN\NITROFURANTOIN MONOHYDRATE
  27. ALLEGRA [Concomitant]
     Active Substance: FEXOFENADINE HYDROCHLORIDE
  28. ATROPA BELLADONNA\HOMEOPATHICS [Concomitant]
     Active Substance: ATROPA BELLADONNA\HOMEOPATHICS
  29. ALBUTEROL [Concomitant]
     Active Substance: ALBUTEROL
  30. CIPRO [Concomitant]
     Active Substance: CIPROFLOXACIN HYDROCHLORIDE
  31. VITAMIN D [Concomitant]
     Active Substance: VITAMIN D NOS
  32. BENADRYL ALLERGY [Concomitant]
     Active Substance: DIPHENHYDRAMINE HYDROCHLORIDE
  33. XYLOMETAZOLINE HYDROCHLORIDE [Concomitant]
     Active Substance: XYLOMETAZOLINE HYDROCHLORIDE
  34. CEPHALEXIN [Concomitant]
     Active Substance: CEPHALEXIN
  35. CITALOPRAM HYDROBROMIDE [Concomitant]
     Active Substance: CITALOPRAM HYDROBROMIDE
  36. DIPHENHYDRAMINE HYDROCHLORIDE [Concomitant]
     Active Substance: DIPHENHYDRAMINE HYDROCHLORIDE

REACTIONS (28)
  - Ear infection [Unknown]
  - Renal failure [Unknown]
  - Cataract [Unknown]
  - Nasal congestion [Unknown]
  - Nasopharyngitis [Unknown]
  - Therapy partial responder [Unknown]
  - Procedural pain [Unknown]
  - Oxygen saturation abnormal [Unknown]
  - Vein rupture [Unknown]
  - Infusion site pain [Unknown]
  - Infusion site bruising [Unknown]
  - Infusion site warmth [Unknown]
  - Infusion site pruritus [Unknown]
  - Rash pruritic [Unknown]
  - Arthralgia [Unknown]
  - Fall [Unknown]
  - Rash erythematous [Unknown]
  - Wrist fracture [Unknown]
  - Varicella [Unknown]
  - Foot fracture [Unknown]
  - Dyspnoea exertional [Unknown]
  - Sinusitis [Unknown]
  - Rash [Unknown]
  - Influenza [Unknown]
  - Drug hypersensitivity [Unknown]
  - Cough [Unknown]
  - Chest discomfort [Unknown]
  - Sinusitis [Unknown]

NARRATIVE: CASE EVENT DATE: 20240624
